FAERS Safety Report 23764914 (Version 3)
Quarter: 2024Q2

REPORT INFORMATION
  Report Type: Report from Study
  Country: US (occurrence: US)
  Receive Date: 20240420
  Receipt Date: 20240430
  Transmission Date: 20240716
  Serious: Yes (Hospitalization, Other)
  Sender: FDA-Public Use
  Company Number: US-ABBVIE-5724593

PATIENT
  Sex: Female
  Weight: 55 kg

DRUGS (1)
  1. SKYRIZI [Suspect]
     Active Substance: RISANKIZUMAB-RZAA
     Indication: Crohn^s disease
     Route: 058
     Dates: end: 20240205

REACTIONS (9)
  - Small intestinal resection [Unknown]
  - Small intestinal stenosis [Unknown]
  - White blood cell disorder [Unknown]
  - Small intestine ulcer [Unknown]
  - Lymphadenopathy [Unknown]
  - Peritonitis [Unknown]
  - Inflammation [Unknown]
  - Abdominal adhesions [Unknown]
  - Small intestinal perforation [Unknown]
